FAERS Safety Report 8474226-4 (Version None)
Quarter: 2012Q2

REPORT INFORMATION
  Report Type: 
  Country: None (occurrence: None)
  Receive Date: 20120628
  Receipt Date: 20120614
  Transmission Date: 20120825
  Serious: No
  Sender: FDA-Public Use
  Company Number: US-JNJFOC-20120608425

PATIENT
  Sex: Male

DRUGS (17)
  1. FENTANYL-100 [Suspect]
     Indication: BACK PAIN
     Route: 062
     Dates: start: 20120101
  2. NORCO [Concomitant]
     Dosage: 1-2 10/325 MG 4-6 HOURS UPTO 8 DAILY
     Route: 048
  3. FIORICET [Concomitant]
     Indication: MIGRAINE
     Dosage: MAXIMAM OF 12 PER WEEK
     Route: 048
  4. WELCHOL [Concomitant]
     Indication: DIARRHOEA
     Route: 048
  5. FLUTICASONE PROPIONATE [Concomitant]
     Indication: MULTIPLE ALLERGIES
     Route: 045
  6. METFORMIN HCL [Concomitant]
     Indication: DIABETES MELLITUS
     Route: 048
  7. LIBRAX [Concomitant]
     Indication: IRRITABLE BOWEL SYNDROME
     Route: 048
     Dates: start: 20101201
  8. AMBIEN [Concomitant]
     Indication: SLEEP DISORDER
     Route: 048
  9. CYMBALTA [Concomitant]
     Indication: PAIN
     Route: 048
  10. FENTANYL-100 [Suspect]
     Indication: PAIN IN EXTREMITY
     Route: 062
     Dates: start: 20120101
  11. VITAMIN D [Concomitant]
     Route: 048
  12. TORADOL [Concomitant]
     Indication: MIGRAINE
     Dosage: 1-3 TIMES AS NEEDED PER DAY
     Route: 030
  13. PRILOSEC [Concomitant]
     Indication: GASTROOESOPHAGEAL REFLUX DISEASE
     Route: 048
  14. ZANAFLEX [Concomitant]
     Indication: MUSCLE RELAXANT THERAPY
     Dosage: 2-8 MG; 1-3 TIMES PER DAY
     Route: 048
  15. TESTOSTERONE [Concomitant]
     Route: 061
     Dates: start: 20111001
  16. LEVSIN PB [Concomitant]
     Indication: IRRITABLE BOWEL SYNDROME
     Route: 065
     Dates: start: 20101201
  17. NEURONTIN [Concomitant]
     Indication: NEUROPATHY PERIPHERAL
     Dosage: 1-3 TIMES AS NEEDED PER DAY
     Route: 048

REACTIONS (4)
  - WRONG TECHNIQUE IN DRUG USAGE PROCESS [None]
  - OEDEMA PERIPHERAL [None]
  - MIGRAINE [None]
  - WEIGHT DECREASED [None]
